FAERS Safety Report 18579110 (Version 1)
Quarter: 2020Q4

REPORT INFORMATION
  Report Type: Spontaneous
  Country: US (occurrence: US)
  Receive Date: 20201203
  Receipt Date: 20201203
  Transmission Date: 20210114
  Serious: Yes (Other)
  Sender: FDA-Public Use
  Company Number: None

PATIENT
  Age: 47 Year
  Sex: Female
  Weight: 68.85 kg

DRUGS (3)
  1. AMITRIPTILINE [Concomitant]
  2. OMEPRAZOLE. [Concomitant]
     Active Substance: OMEPRAZOLE
  3. EMGALITY [Suspect]
     Active Substance: GALCANEZUMAB-GNLM
     Indication: MIGRAINE
     Dosage: ?          OTHER FREQUENCY:EVERY 28 DAYS;?
     Route: 058
     Dates: start: 20200903, end: 20201101

REACTIONS (5)
  - Fatigue [None]
  - Sensitive skin [None]
  - Myalgia [None]
  - Laboratory test abnormal [None]
  - Influenza like illness [None]

NARRATIVE: CASE EVENT DATE: 20201018
